FAERS Safety Report 23651719 (Version 1)
Quarter: 2024Q1

REPORT INFORMATION
  Report Type: Spontaneous
  Country: BR (occurrence: BR)
  Receive Date: 20240320
  Receipt Date: 20240320
  Transmission Date: 20240410
  Serious: Yes (Other)
  Sender: FDA-Public Use
  Company Number: BR-IPCA LABORATORIES LIMITED-IPC-2024-BR-000686

PATIENT

DRUGS (1)
  1. WARFARIN SODIUM [Suspect]
     Active Substance: WARFARIN SODIUM
     Indication: Product used for unknown indication
     Dosage: UNK
     Route: 065

REACTIONS (7)
  - Pulmonary embolism [Unknown]
  - Haemorrhagic transformation stroke [Unknown]
  - Deep vein thrombosis [Unknown]
  - Protein S deficiency [Unknown]
  - Haemorrhage [Unknown]
  - Toxicity to various agents [Unknown]
  - Protein C deficiency [Unknown]
